FAERS Safety Report 5126966-2 (Version None)
Quarter: 2006Q4

REPORT INFORMATION
  Report Type: 
  Country: None (occurrence: None)
  Receive Date: 20061013
  Receipt Date: 20061002
  Transmission Date: 20070319
  Serious: No
  Sender: FDA-Public Use
  Company Number: GB-MERCK-0610GBR00065B1

PATIENT
  Sex: Male
  Weight: 3 kg

DRUGS (1)
  1. CLINORIL [Suspect]

REACTIONS (2)
  - NEONATAL RESPIRATORY DEPRESSION [None]
  - PULSE WAVEFORM ABNORMAL [None]
